FAERS Safety Report 4448582-8 (Version None)
Quarter: 2004Q3

REPORT INFORMATION
  Report Type: 
  Country: None (occurrence: None)
  Receive Date: 20040909
  Receipt Date: 20040824
  Transmission Date: 20050211
  Serious: Yes (Other)
  Sender: FDA-Public Use
  Company Number: AU_040507697

PATIENT
  Age: 75 Year
  Sex: Female

DRUGS (1)
  1. ZYPREXA [Suspect]
     Indication: MENTAL DISORDER
     Dosage: 10 MG/1 DAY
     Dates: start: 19990101

REACTIONS (7)
  - COLOUR BLINDNESS [None]
  - DIVERTICULITIS [None]
  - NERVE CONDUCTION STUDIES ABNORMAL [None]
  - OPTIC NEUROPATHY [None]
  - VISION BLURRED [None]
  - VISUAL ACUITY REDUCED [None]
  - VISUAL FIELD DEFECT [None]
